FAERS Safety Report 22689641 (Version 2)
Quarter: 2025Q2

REPORT INFORMATION
  Report Type: Report from Study
  Country: IN (occurrence: IN)
  Receive Date: 20230711
  Receipt Date: 20250514
  Transmission Date: 20250717
  Serious: Yes (Other)
  Sender: ROCHE
  Company Number: IN-ROCHE-3380695

PATIENT
  Age: 69 Year
  Sex: Male
  Weight: 50.0 kg

DRUGS (1)
  1. TECENTRIQ [Suspect]
     Active Substance: ATEZOLIZUMAB
     Indication: Hepatocellular carcinoma
     Route: 042
     Dates: start: 20230228

REACTIONS (2)
  - Tumour pseudoprogression [Unknown]
  - Hepatomegaly [Unknown]
